FAERS Safety Report 22388627 (Version 1)
Quarter: 2023Q2

REPORT INFORMATION
  Report Type: Spontaneous
  Country: US (occurrence: None)
  Receive Date: 20230529
  Receipt Date: 20230529
  Transmission Date: 20230722
  Serious: Yes (Other)
  Sender: FDA-Public Use
  Company Number: None

PATIENT
  Age: 50 Year
  Sex: Male
  Weight: 85.5 kg

DRUGS (8)
  1. SUBOXONE [Suspect]
     Active Substance: BUPRENORPHINE HYDROCHLORIDE\NALOXONE HYDROCHLORIDE
     Indication: Drug dependence
  2. SUBOXONE [Concomitant]
     Active Substance: BUPRENORPHINE HYDROCHLORIDE\NALOXONE HYDROCHLORIDE
  3. CRESTOR [Concomitant]
     Active Substance: ROSUVASTATIN CALCIUM
  4. PRISTIQ EXTENDED-RELEASE [Concomitant]
     Active Substance: DESVENLAFAXINE SUCCINATE
  5. WELLBUTRIN [Concomitant]
     Active Substance: BUPROPION HYDROCHLORIDE
  6. AMBIEN [Concomitant]
     Active Substance: ZOLPIDEM TARTRATE
  7. DAYVIGO [Concomitant]
     Active Substance: LEMBOREXANT
  8. TESTOSTERONE [Concomitant]
     Active Substance: TESTOSTERONE

REACTIONS (17)
  - Gingival recession [None]
  - Toothache [None]
  - Endodontic procedure [None]
  - Artificial crown procedure [None]
  - Dental caries [None]
  - Tooth extraction [None]
  - Economic problem [None]
  - Oral pain [None]
  - Product label issue [None]
  - Psychiatric symptom [None]
  - Panic disorder [None]
  - Anxiety [None]
  - Major depression [None]
  - Insomnia [None]
  - Emotional distress [None]
  - Product complaint [None]
  - Withdrawal syndrome [None]

NARRATIVE: CASE EVENT DATE: 20160115
